FAERS Safety Report 24724662 (Version 1)
Quarter: 2024Q4

REPORT INFORMATION
  Report Type: Report from Study
  Country: CA (occurrence: CA)
  Receive Date: 20241212
  Receipt Date: 20241212
  Transmission Date: 20250115
  Serious: Yes (Hospitalization)
  Sender: ABBVIE
  Company Number: CA-ABBVIE-6039813

PATIENT
  Age: 34 Year
  Sex: Female

DRUGS (1)
  1. SKYRIZI [Suspect]
     Active Substance: RISANKIZUMAB-RZAA
     Indication: Crohn^s disease
     Dosage: FREQUENCY TEXT: 600MG IV AT WEEK 0, 4 AND 8. 360MG AT WEEK 12 AND EVERY 8 WEEKS AFTER.
     Route: 042
     Dates: start: 20241111

REACTIONS (2)
  - Abdominal pain [Recovering/Resolving]
  - Abscess [Recovering/Resolving]

NARRATIVE: CASE EVENT DATE: 20240101
